FAERS Safety Report 18180901 (Version 1)
Quarter: 2020Q3

REPORT INFORMATION
  Report Type: Spontaneous
  Country: CZ (occurrence: CZ)
  Receive Date: 20200821
  Receipt Date: 20200821
  Transmission Date: 20201103
  Serious: Yes (Disabling, Other)
  Sender: FDA-Public Use
  Company Number: CZ-MYLANLABS-2020M1071850

PATIENT
  Age: 70 Year
  Sex: Male

DRUGS (6)
  1. PACLITAXEL. [Suspect]
     Active Substance: PACLITAXEL
     Indication: NON-SMALL CELL LUNG CANCER METASTATIC
     Dosage: 330 MILLIGRAM
     Route: 042
     Dates: start: 201505
  2. ERLOTINIB [Suspect]
     Active Substance: ERLOTINIB
     Indication: NON-SMALL CELL LUNG CANCER METASTATIC
     Dosage: 100 MILLIGRAM, QD
  3. GEFITINIB. [Suspect]
     Active Substance: GEFITINIB
     Indication: NON-SMALL CELL LUNG CANCER METASTATIC
     Dosage: 250 MILLIGRAM, QD
     Dates: start: 201411
  4. CARBOPLATIN. [Suspect]
     Active Substance: CARBOPLATIN
     Indication: NON-SMALL CELL LUNG CANCER METASTATIC
     Dosage: 425 MILLIGRAM AUC5
     Route: 042
     Dates: start: 201505
  5. BEVACIZUMAB. [Suspect]
     Active Substance: BEVACIZUMAB
     Indication: NON-SMALL CELL LUNG CANCER METASTATIC
     Dosage: 7.5 MILLIGRAM/KILOGRAM (600 MG)
     Route: 042
     Dates: start: 201505
  6. ERLOTINIB [Suspect]
     Active Substance: ERLOTINIB
     Indication: NON-SMALL CELL LUNG CANCER
     Dosage: 150 MILLIGRAM, QD
     Route: 065
     Dates: start: 201509

REACTIONS (3)
  - Rash pustular [Recovered/Resolved]
  - Rash [Unknown]
  - Treatment failure [Unknown]
